FAERS Safety Report 9795580 (Version 2)
Quarter: 2014Q1

REPORT INFORMATION
  Report Type: Spontaneous
  Country: DE (occurrence: DE)
  Receive Date: 20140103
  Receipt Date: 20140103
  Transmission Date: 20141002
  Serious: Yes (Other)
  Sender: FDA-Public Use
  Company Number: DE-BRISTOL-MYERS SQUIBB COMPANY-19689520

PATIENT
  Age: 55 Year
  Sex: Female
  Weight: 57 kg

DRUGS (6)
  1. LITALIR [Suspect]
     Indication: ESSENTIAL THROMBOCYTHAEMIA
     Dosage: 25SEP2009?2000MG- TOTAL DOSE DAILY
     Route: 048
     Dates: start: 20090525
  2. LINOLA-FETT [Concomitant]
  3. HYDROXYZINE [Concomitant]
  4. PASPERTIN [Concomitant]
  5. METAMIZOLE [Concomitant]
  6. TREVILOR [Concomitant]

REACTIONS (2)
  - Keratosis follicular [Not Recovered/Not Resolved]
  - Off label use [Unknown]
